FAERS Safety Report 25863941 (Version 1)
Quarter: 2025Q3

REPORT INFORMATION
  Report Type: Report from Study
  Country: CA (occurrence: CA)
  Receive Date: 20250930
  Receipt Date: 20250930
  Transmission Date: 20251020
  Serious: Yes (Hospitalization, Other)
  Sender: SANOFI AVENTIS
  Company Number: CA-SA-2025SA237755

PATIENT
  Age: 67 Year
  Sex: Female
  Weight: 74.5 kg

DRUGS (5)
  1. AGALSIDASE BETA [Suspect]
     Active Substance: AGALSIDASE BETA
     Indication: Fabry^s disease
     Dosage: 80 MG, QOW
     Route: 042
     Dates: start: 20150313
  2. AGALSIDASE BETA [Suspect]
     Active Substance: AGALSIDASE BETA
     Dosage: 70 MG, QOW
     Route: 042
  3. ELIQUIS [Concomitant]
     Active Substance: APIXABAN
     Dosage: 5 MG, QD
  4. SOTALOL [Concomitant]
     Active Substance: SOTALOL
     Dosage: 100 MG, BID
  5. COUMADIN [Concomitant]
     Active Substance: WARFARIN SODIUM
     Dates: start: 2025

REACTIONS (7)
  - Atrial fibrillation [Recovering/Resolving]
  - Heart rate irregular [Recovering/Resolving]
  - Cardiac ablation [Unknown]
  - Gait disturbance [Unknown]
  - Fatigue [Unknown]
  - Product prescribing issue [Unknown]
  - Incorrect dose administered [Unknown]

NARRATIVE: CASE EVENT DATE: 20250801
